FAERS Safety Report 6526116-1 (Version None)
Quarter: 2010Q1

REPORT INFORMATION
  Report Type: 
  Country: None (occurrence: None)
  Receive Date: 20100104
  Receipt Date: 20091222
  Transmission Date: 20100710
  Serious: Yes (Other)
  Sender: FDA-Public Use
  Company Number: JP-AMGEN-US351462

PATIENT
  Age: 67 Year
  Sex: Female

DRUGS (5)
  1. ENBREL [Suspect]
     Indication: RHEUMATOID ARTHRITIS
     Dosage: UNSPECIFIED
     Route: 058
     Dates: start: 20070101
  2. ENBREL [Suspect]
     Dosage: UNSPECIFIED
     Route: 058
  3. PREDNISOLONE [Concomitant]
     Dosage: UNSPECIFIED
     Route: 048
  4. PREDNISOLONE [Concomitant]
     Route: 048
  5. PREDNISOLONE [Concomitant]
     Dosage: UNSPECIFIED
     Route: 048

REACTIONS (2)
  - ENTEROCOLITIS [None]
  - PNEUMONIA CRYPTOCOCCAL [None]
